FAERS Safety Report 7715675-9 (Version None)
Quarter: 2011Q3

REPORT INFORMATION
  Report Type: 
  Country: None (occurrence: None)
  Receive Date: 20110829
  Receipt Date: 20110826
  Transmission Date: 20111222
  Serious: Yes (Other)
  Sender: FDA-Public Use
  Company Number: US-PFIZER INC-2011199507

PATIENT
  Sex: Male
  Weight: 81.633 kg

DRUGS (3)
  1. NORVASC [Concomitant]
     Indication: HYPERTENSION
     Dosage: UNK
  2. MELOXICAM [Concomitant]
     Indication: HYPERTENSION
     Dosage: UNK
  3. ZOLOFT [Suspect]
     Indication: DEPRESSION
     Dosage: 50 MG, 2X/DAY
     Route: 048
     Dates: start: 20110701

REACTIONS (4)
  - PAIN IN EXTREMITY [None]
  - BACK PAIN [None]
  - DYSSTASIA [None]
  - BONE PAIN [None]
